FAERS Safety Report 25995340 (Version 2)
Quarter: 2025Q4

REPORT INFORMATION
  Report Type: Spontaneous
  Country: SA (occurrence: SA)
  Receive Date: 20251104
  Receipt Date: 20251215
  Transmission Date: 20260118
  Serious: Yes (Other)
  Sender: AMGEN
  Company Number: SA-AMGEN-SAUSP2025215805

PATIENT
  Age: 73 Year
  Sex: Male
  Weight: 92 kg

DRUGS (2)
  1. REPATHA [Suspect]
     Active Substance: EVOLOCUMAB
     Indication: Type IIa hyperlipidaemia
     Dosage: 140 MILLIGRAM, Q2WK
     Route: 058
     Dates: start: 20250806
  2. EZETIMIBE [Suspect]
     Active Substance: EZETIMIBE
     Indication: Type IIa hyperlipidaemia
     Dosage: 10 MILLIGRAM, QD
     Route: 065

REACTIONS (2)
  - Coronary artery disease [Unknown]
  - Pollakiuria [Not Recovered/Not Resolved]

NARRATIVE: CASE EVENT DATE: 20251001
